FAERS Safety Report 7962553-6 (Version None)
Quarter: 2011Q4

REPORT INFORMATION
  Report Type: 
  Country: None (occurrence: None)
  Receive Date: 20111207
  Receipt Date: 20111130
  Transmission Date: 20120403
  Serious: Yes (Other)
  Sender: FDA-Public Use
  Company Number: BR-GLAXOSMITHKLINE-B0767535A

PATIENT
  Sex: Male
  Weight: 81 kg

DRUGS (2)
  1. FLUTICASONE PROPIONATE/SALMETEROL [Suspect]
     Indication: BRONCHITIS
     Route: 065
     Dates: start: 20090401
  2. BEROTEC [Concomitant]
     Dosage: 7DROP AS REQUIRED
     Dates: start: 20090401

REACTIONS (1)
  - ANOSMIA [None]
